FAERS Safety Report 10073156 (Version 1)
Quarter: 2014Q2

REPORT INFORMATION
  Report Type: Report from Study
  Country: US (occurrence: US)
  Receive Date: 20140411
  Receipt Date: 20140411
  Transmission Date: 20141212
  Serious: Yes (Life-Threatening, Other)
  Sender: FDA-Public Use
  Company Number: US-JNJFOC-20140406699

PATIENT
  Age: 43 Year
  Sex: Female

DRUGS (4)
  1. NUCYNTA [Suspect]
     Indication: PRODUCT USED FOR UNKNOWN INDICATION
     Route: 048
  2. TRAMADOL [Suspect]
     Indication: PRODUCT USED FOR UNKNOWN INDICATION
     Route: 048
  3. TRAZODONE [Suspect]
     Indication: PRODUCT USED FOR UNKNOWN INDICATION
     Route: 048
  4. ETODOLAC [Suspect]
     Indication: PRODUCT USED FOR UNKNOWN INDICATION
     Route: 048

REACTIONS (7)
  - Suicide attempt [Recovered/Resolved]
  - Toxicity to various agents [Unknown]
  - Overdose [Unknown]
  - Convulsion [Unknown]
  - Agitation [Unknown]
  - Sinus disorder [Unknown]
  - Unresponsive to stimuli [Unknown]
